FAERS Safety Report 17856465 (Version 1)
Quarter: 2020Q2

REPORT INFORMATION
  Report Type: Report from Study
  Country: MX (occurrence: MX)
  Receive Date: 20200603
  Receipt Date: 20200603
  Transmission Date: 20200714
  Serious: Yes (Other)
  Sender: FDA-Public Use
  Company Number: MX-UCBSA-2020022271

PATIENT
  Sex: Male

DRUGS (3)
  1. LEVETIRACETAM. [Suspect]
     Active Substance: LEVETIRACETAM
     Indication: SEIZURE
     Dosage: 1 MILLILITER, 2X/DAY (BID)
     Route: 048
     Dates: start: 2020, end: 2020
  2. KEPPRA [Suspect]
     Active Substance: LEVETIRACETAM
     Indication: SEIZURE
     Dosage: 1 MILLILITER, 2X/DAY (BID)
     Route: 048
     Dates: start: 2020, end: 2020
  3. KEPPRA [Suspect]
     Active Substance: LEVETIRACETAM
     Dosage: 2 MILLILITER, 2X/DAY (BID)
     Route: 048
     Dates: start: 2020

REACTIONS (3)
  - Wrong technique in product usage process [Unknown]
  - Seizure [Recovered/Resolved]
  - Off label use [Unknown]

NARRATIVE: CASE EVENT DATE: 2020
